FAERS Safety Report 14363356 (Version 1)
Quarter: 2018Q1

REPORT INFORMATION
  Report Type: Report from Study
  Country: CA (occurrence: CA)
  Receive Date: 20180108
  Receipt Date: 20180108
  Transmission Date: 20180509
  Serious: Yes (Other)
  Sender: FDA-Public Use
  Company Number: CA-GLAXOSMITHKLINE-CA2017GSK202710

PATIENT
  Sex: Male
  Weight: 122 kg

DRUGS (3)
  1. SYMBICORT [Suspect]
     Active Substance: BUDESONIDE\FORMOTEROL FUMARATE DIHYDRATE
     Indication: PRODUCT USED FOR UNKNOWN INDICATION
     Dosage: 2 PUFF(S), BID, APAP
     Route: 055
  2. SALBUTAMOL SULPHATE [Suspect]
     Active Substance: ALBUTEROL SULFATE
     Indication: PRODUCT USED FOR UNKNOWN INDICATION
     Dosage: UNK UNK, Z, 100MCG INHALER, 1-2 SPRAYS FOUR TIMES DAILY AS NEEDED
     Route: 055
  3. SPIRIVA RESPIMAT [Suspect]
     Active Substance: TIOTROPIUM BROMIDE
     Indication: PRODUCT USED FOR UNKNOWN INDICATION
     Dosage: 2 PUFF(S), QD
     Route: 055

REACTIONS (10)
  - Asthma [Unknown]
  - Respiratory tract infection [Unknown]
  - Obstructive airways disorder [Unknown]
  - Pickwickian syndrome [Unknown]
  - Obesity [Unknown]
  - Wheezing [Unknown]
  - Cough [Unknown]
  - Respiratory failure [Unknown]
  - Hypoxia [Unknown]
  - Weight decreased [Unknown]
